FAERS Safety Report 7555594-4 (Version None)
Quarter: 2011Q2

REPORT INFORMATION
  Report Type: 
  Country: None (occurrence: None)
  Receive Date: 20110617
  Receipt Date: 20010117
  Transmission Date: 20111010
  Serious: Yes (Hospitalization)
  Sender: FDA-Public Use
  Company Number: PHBS2001AR00972

PATIENT
  Sex: Female

DRUGS (8)
  1. CLONAZEPAM [Concomitant]
     Dosage: 0.75 MG/DAY
  2. MOTILIUM [Concomitant]
     Dosage: 40 MG/DAY
  3. MADOPAR [Concomitant]
     Dosage: 1250 MG/DAY
  4. PRILOSEC [Concomitant]
     Dosage: UNKNOWN
  5. CLOZARIL [Suspect]
     Indication: PARKINSON'S DISEASE
     Dosage: 31.25 MG/DAY
     Route: 048
     Dates: start: 20000814, end: 20010111
  6. FERROUS SULFATE TAB [Concomitant]
     Dosage: UNKNOWN
  7. ATENOLOL [Concomitant]
     Dosage: 12.5 MG/DAY
  8. FOLIC ACID [Concomitant]
     Dosage: UNKNOWN

REACTIONS (2)
  - ANAEMIA [None]
  - PLATELET COUNT DECREASED [None]
